FAERS Safety Report 10261914 (Version 1)
Quarter: 2014Q2

REPORT INFORMATION
  Report Type: Spontaneous
  Country: US (occurrence: US)
  Receive Date: 20140626
  Receipt Date: 20140626
  Transmission Date: 20141212
  Serious: No
  Sender: FDA-Public Use
  Company Number: US-009507513-1406USA003229

PATIENT
  Sex: Female

DRUGS (1)
  1. CLARITIN [Suspect]
     Indication: URTICARIA
     Dosage: UNK, UNKNOWN
     Route: 048
     Dates: start: 201405

REACTIONS (1)
  - Drug ineffective for unapproved indication [Unknown]
